FAERS Safety Report 12512079 (Version 2)
Quarter: 2016Q3

REPORT INFORMATION
  Report Type: Spontaneous
  Country: US (occurrence: US)
  Receive Date: 20160630
  Receipt Date: 20160810
  Transmission Date: 20161109
  Serious: Yes (Hospitalization)
  Sender: FDA-Public Use
  Company Number: US-JNJFOC-20160509662

PATIENT
  Age: 76 Year
  Sex: Female

DRUGS (4)
  1. XARELTO [Suspect]
     Active Substance: RIVAROXABAN
     Indication: ATRIAL FIBRILLATION
     Dosage: VARYING DOSES OF 15, 20 MG
     Route: 048
     Dates: start: 20130802, end: 20140917
  2. XARELTO [Suspect]
     Active Substance: RIVAROXABAN
     Indication: THROMBOSIS PROPHYLAXIS
     Dosage: VARYING DOSES OF 15, 20 MG
     Route: 048
     Dates: start: 20130802, end: 20140917
  3. XARELTO [Suspect]
     Active Substance: RIVAROXABAN
     Indication: DEEP VEIN THROMBOSIS
     Dosage: VARYING DOSES OF 15, 20 MG
     Route: 048
     Dates: start: 20130802, end: 20140917
  4. XARELTO [Suspect]
     Active Substance: RIVAROXABAN
     Indication: CEREBROVASCULAR ACCIDENT PROPHYLAXIS
     Dosage: VARYING DOSES OF 15, 20 MG
     Route: 048
     Dates: start: 20130802, end: 20140917

REACTIONS (4)
  - Pulmonary haemorrhage [Recovering/Resolving]
  - Acute kidney injury [Recovering/Resolving]
  - Pulmonary alveolar haemorrhage [Unknown]
  - Pulmonary haemorrhage [Unknown]

NARRATIVE: CASE EVENT DATE: 20140718
